FAERS Safety Report 19586932 (Version 1)
Quarter: 2021Q3

REPORT INFORMATION
  Report Type: Spontaneous
  Country: TH (occurrence: TH)
  Receive Date: 20210720
  Receipt Date: 20210720
  Transmission Date: 20211014
  Serious: Yes (Death, Other)
  Sender: FDA-Public Use
  Company Number: TH-BAXTER-2021BAX020611

PATIENT
  Age: 72 Year
  Sex: Male

DRUGS (2)
  1. DIANEAL PD?2 WITH DEXTROSE [Suspect]
     Active Substance: CALCIUM CHLORIDE\DEXTROSE\MAGNESIUM CHLORIDE\SODIUM CHLORIDE\SODIUM LACTATE
     Indication: END STAGE RENAL DISEASE
     Route: 033
     Dates: start: 20181012, end: 20210626
  2. DIANEAL PD?2 PERITONEAL DIALYSIS SOLUTION WITH DEXTROSE [Suspect]
     Active Substance: CALCIUM CHLORIDE\DEXTROSE\MAGNESIUM CHLORIDE\SODIUM CHLORIDE\SODIUM LACTATE
     Indication: END STAGE RENAL DISEASE
     Route: 033
     Dates: start: 20181012, end: 20210626

REACTIONS (3)
  - Dyspnoea [Unknown]
  - Peritonitis [Unknown]
  - Death [Fatal]

NARRATIVE: CASE EVENT DATE: 202106
